FAERS Safety Report 5522480-0 (Version None)
Quarter: 2007Q4

REPORT INFORMATION
  Report Type: 
  Country: None (occurrence: None)
  Receive Date: 20071120
  Receipt Date: 20071113
  Transmission Date: 20080405
  Serious: Yes (Other)
  Sender: FDA-Public Use
  Company Number: US-ELI_LILLY_AND_COMPANY-US200711003005

PATIENT
  Sex: Female

DRUGS (5)
  1. HUMALOG [Suspect]
     Indication: DIABETES MELLITUS
  2. HUMULIN N [Suspect]
     Indication: DIABETES MELLITUS
     Dosage: UNK, UNK
     Dates: start: 20070101
  3. HUMULIN L [Suspect]
     Indication: DIABETES MELLITUS
     Dosage: UNK, UNK
     Dates: start: 19850101, end: 20070101
  4. PREVACID [Concomitant]
  5. COZAAR [Concomitant]

REACTIONS (10)
  - BLOOD GLUCOSE INCREASED [None]
  - CATARACT [None]
  - EYE SWELLING [None]
  - HAEMORRHAGE [None]
  - HYPERSENSITIVITY [None]
  - RENAL FAILURE [None]
  - RETINAL HAEMORRHAGE [None]
  - URTICARIA [None]
  - VISION BLURRED [None]
  - VISUAL ACUITY REDUCED [None]
